FAERS Safety Report 24089256 (Version 1)
Quarter: 2024Q3

REPORT INFORMATION
  Report Type: Report from Study
  Country: FR (occurrence: None)
  Receive Date: 20240715
  Receipt Date: 20240715
  Transmission Date: 20241017
  Serious: Yes (Other)
  Sender: ASTRAZENECA
  Company Number: 2019SE85383

PATIENT
  Age: 19720 Day
  Sex: Female
  Weight: 48 kg

DRUGS (2)
  1. LYNPARZA [Suspect]
     Active Substance: OLAPARIB
     Indication: Ovarian cancer stage IV
     Route: 048
     Dates: start: 20190419, end: 20190611
  2. LYNPARZA [Suspect]
     Active Substance: OLAPARIB
     Indication: Ovarian cancer stage IV
     Route: 048
     Dates: start: 20190703

REACTIONS (11)
  - Gastrointestinal disorder [Recovered/Resolved]
  - Anaemia [Recovering/Resolving]
  - Mean cell volume abnormal [Unknown]
  - Haematocrit abnormal [Unknown]
  - Mean cell haemoglobin decreased [Unknown]
  - Haemoglobin abnormal [Not Recovered/Not Resolved]
  - Nausea [Recovered/Resolved]
  - Headache [Recovered/Resolved]
  - Malaise [Recovered/Resolved]
  - Abdominal pain [Recovered/Resolved]
  - Eastern Cooperative Oncology Group performance status worsened [Not Recovered/Not Resolved]

NARRATIVE: CASE EVENT DATE: 20190401
